FAERS Safety Report 13905510 (Version 1)
Quarter: 2017Q3

REPORT INFORMATION
  Report Type: Spontaneous
  Country: US (occurrence: None)
  Receive Date: 20170821
  Receipt Date: 20170821
  Transmission Date: 20171127
  Serious: No
  Sender: FDA-Public Use
  Company Number: None

PATIENT
  Age: 53 Year
  Sex: Female
  Weight: 77.11 kg

DRUGS (2)
  1. ALEVE [Concomitant]
     Active Substance: NAPROXEN SODIUM
  2. METFORMIN HCL 1.000MG [Suspect]
     Active Substance: METFORMIN HYDROCHLORIDE
     Indication: TYPE 2 DIABETES MELLITUS
     Dates: start: 20160428

REACTIONS (9)
  - Swelling face [None]
  - Dyspnoea [None]
  - Headache [None]
  - Cardiac flutter [None]
  - Muscle spasms [None]
  - Hyperhidrosis [None]
  - Nausea [None]
  - Back disorder [None]
  - Peripheral swelling [None]

NARRATIVE: CASE EVENT DATE: 20160327
